FAERS Safety Report 4886342-4 (Version None)
Quarter: 2006Q1

REPORT INFORMATION
  Report Type: 
  Country: None (occurrence: None)
  Receive Date: 20060120
  Receipt Date: 20051005
  Transmission Date: 20060701
  Serious: Yes (Death, Other)
  Sender: FDA-Public Use
  Company Number: US-MERCK-0510USA04789

PATIENT
  Age: 82 Year
  Sex: Female
  Weight: 66 kg

DRUGS (1)
  1. VIOXX [Suspect]
     Indication: ARTHRITIS
     Route: 048
     Dates: start: 20000101, end: 20011125

REACTIONS (3)
  - CARDIOVASCULAR DISORDER [None]
  - DEATH [None]
  - MYOCARDIAL INFARCTION [None]
